FAERS Safety Report 5137042-7 (Version None)
Quarter: 2006Q4

REPORT INFORMATION
  Report Type: 
  Country: None (occurrence: None)
  Receive Date: 20061024
  Receipt Date: 20061024
  Transmission Date: 20070319
  Serious: Yes (Hospitalization)
  Sender: FDA-Public Use
  Company Number: None

PATIENT
  Age: 38 Year
  Sex: Male

DRUGS (3)
  1. BACTRIM [Suspect]
     Dates: start: 20050322, end: 20050416
  2. FLOMAX [Concomitant]
  3. ALLEGRA [Concomitant]

REACTIONS (7)
  - CHILLS [None]
  - CHOLELITHIASIS [None]
  - HEPATIC TRAUMA [None]
  - HEPATITIS [None]
  - PANCREATITIS [None]
  - POST PROCEDURAL COMPLICATION [None]
  - WEIGHT DECREASED [None]
